FAERS Safety Report 25034401 (Version 2)
Quarter: 2025Q1

REPORT INFORMATION
  Report Type: Spontaneous
  Country: US (occurrence: US)
  Receive Date: 20250304
  Receipt Date: 20250325
  Transmission Date: 20250409
  Serious: No
  Sender: ELI LILLY AND COMPANY
  Company Number: US-ELI_LILLY_AND_COMPANY-US202503000186

PATIENT
  Age: 80 Year
  Sex: Female

DRUGS (4)
  1. TALTZ [Suspect]
     Active Substance: IXEKIZUMAB
     Indication: Psoriasis
     Route: 065
     Dates: start: 20240207
  2. TALTZ [Suspect]
     Active Substance: IXEKIZUMAB
     Route: 065
  3. TALTZ [Suspect]
     Active Substance: IXEKIZUMAB
     Route: 065
  4. TALTZ [Suspect]
     Active Substance: IXEKIZUMAB
     Route: 065

REACTIONS (12)
  - Neuralgia [Unknown]
  - Limb injury [Unknown]
  - Joint injury [Unknown]
  - Wrong technique in product usage process [Unknown]
  - Product administered at inappropriate site [Unknown]
  - Incorrect dose administered [Unknown]
  - Injection site haemorrhage [Unknown]
  - Injection site reaction [Recovered/Resolved]
  - Injection site pain [Unknown]
  - Injection site erythema [Unknown]
  - Injection site swelling [Unknown]
  - Injection site pruritus [Unknown]

NARRATIVE: CASE EVENT DATE: 20250228
